FAERS Safety Report 10426749 (Version 2)
Quarter: 2014Q4

REPORT INFORMATION
  Report Type: Spontaneous
  Country: US (occurrence: None)
  Receive Date: 20140722
  Receipt Date: 20141020
  Transmission Date: 20150528
  Serious: Yes (Other)
  Sender: FDA-Public Use
  Company Number: AEGR000376

PATIENT
  Age: 68 Year
  Sex: Male
  Weight: 102.9 kg

DRUGS (19)
  1. JUXTAPID [Suspect]
     Active Substance: LOMITAPIDE MESYLATE
     Indication: TYPE IIA HYPERLIPIDAEMIA
     Route: 048
     Dates: start: 20130920, end: 201309
  2. METOPROLOL SUCCINATE. [Concomitant]
     Active Substance: METOPROLOL SUCCINATE
  3. LISINOPRIL. [Concomitant]
     Active Substance: LISINOPRIL
  4. LISINOPRIL/HCTZ (HYDROCHLOROTHIAZIDE, LISINOPRIL) [Concomitant]
  5. TERBUTALINE SULFATE. [Concomitant]
     Active Substance: TERBUTALINE SULFATE
  6. VITAMIN E [Concomitant]
     Active Substance: .ALPHA.-TOCOPHEROL
  7. VITAMIN D (ERGOCALCIFEROL) [Concomitant]
     Active Substance: ERGOCALCIFEROL
  8. OMEGA 3-6-9 (FISH OIL, TOCOPHEROL) [Concomitant]
  9. WELCHOL (COLESEVELAM HYDROCHLORIDE) (625 MILLIGRAM, TABLET) (COLESEVELAM HYDROCHLORIDE) [Concomitant]
     Active Substance: COLESEVELAM HYDROCHLORIDE
  10. ALEVE (NAPROXEN SODIUM) [Concomitant]
  11. MULTIVITAMIN (VITAMINS NOS) [Concomitant]
     Active Substance: VITAMINS
  12. ADVIL PM (DIPHENHYDRAMINE HYDROCHLORIDE, IBUPROFEN) [Concomitant]
  13. GABAPENTIN. [Concomitant]
     Active Substance: GABAPENTIN
  14. CHONDROITIN SULFATE (BOVINE)\GLUCOSAMINE SULFATE [Concomitant]
     Active Substance: CHONDROITIN SULFATE (BOVINE)\GLUCOSAMINE SULFATE
  15. CO Q 10 (UBIDECARENONE) [Concomitant]
  16. ASPIRIN (ACETYLSALICYLIC ACID) [Concomitant]
     Active Substance: ASPIRIN
  17. METOPROLOL TARTRATE. [Concomitant]
     Active Substance: METOPROLOL TARTRATE
  18. OMEPRAZOLE. [Concomitant]
     Active Substance: OMEPRAZOLE
  19. HYDROCHLOROTHIAZIDE. [Concomitant]
     Active Substance: HYDROCHLOROTHIAZIDE

REACTIONS (5)
  - Nausea [None]
  - Diarrhoea [None]
  - Vomiting [None]
  - Liver function test abnormal [None]
  - Weight decreased [None]

NARRATIVE: CASE EVENT DATE: 201309
